FAERS Safety Report 6936623-5 (Version None)
Quarter: 2010Q3

REPORT INFORMATION
  Report Type: 
  Country: None (occurrence: None)
  Receive Date: 20100823
  Receipt Date: 20100813
  Transmission Date: 20110219
  Serious: Yes (Death)
  Sender: FDA-Public Use
  Company Number: CO-ROCHE-720959

PATIENT
  Sex: Female

DRUGS (1)
  1. CELLCEPT [Suspect]
     Indication: LIVER TRANSPLANT
     Dosage: FREQUENCY: QD.
     Route: 048
     Dates: start: 20100405, end: 20100701

REACTIONS (1)
  - DISEASE PROGRESSION [None]
